FAERS Safety Report 8362767-X (Version None)
Quarter: 2012Q2

REPORT INFORMATION
  Report Type: 
  Country: None (occurrence: None)
  Receive Date: 20120516
  Receipt Date: 20120509
  Transmission Date: 20120825
  Serious: Yes (Death)
  Sender: FDA-Public Use
  Company Number: PHHY2012UY041141

PATIENT
  Age: 5 Year
  Sex: Female

DRUGS (12)
  1. THIOTEPA [Concomitant]
     Dosage: 5 MG / KG EVERY 12 H ON DAY -4
  2. RITUXIMAB [Concomitant]
     Dosage: 375 MG/M2, ON DAY -1
  3. ORTHOCLONE OKT3 [Concomitant]
  4. IRRADIATION [Concomitant]
  5. ACYCLOVIR [Concomitant]
     Dosage: UNK UKN, UNK
  6. CYCLOSPORINE [Suspect]
     Indication: PROPHYLAXIS AGAINST GRAFT VERSUS HOST DISEASE
     Dosage: 1.5 MG/KG, BID
  7. FLUDARABINE PHOSPHATE [Concomitant]
     Dosage: 30 MG/M2 FROM DAYS -9 TO-5,
  8. MELPHALAN HYDROCHLORIDE [Concomitant]
     Dosage: 70 MG/M2, ONCE DAILY
  9. COTRIM [Concomitant]
     Dosage: UNK UKN, UNK
  10. METHYLPREDNISOLONE [Concomitant]
  11. ANTI-THYMOCYTE GLOBULIN EQUINE NOS [Concomitant]
  12. FLUCONAZOLE [Concomitant]
     Dosage: UNK UKN, UNK

REACTIONS (1)
  - ACUTE LYMPHOCYTIC LEUKAEMIA RECURRENT [None]
